FAERS Safety Report 10084565 (Version 2)
Quarter: 2014Q2

REPORT INFORMATION
  Report Type: Report from Study
  Country: IN (occurrence: IN)
  Receive Date: 20140417
  Receipt Date: 20140417
  Transmission Date: 20141212
  Serious: Yes (Hospitalization, Other)
  Sender: FDA-Public Use
  Company Number: IN-ASTRAZENECA-2014SE16418

PATIENT
  Age: 14040 Day
  Sex: Male
  Weight: 65 kg

DRUGS (13)
  1. VANDETANIB [Suspect]
     Indication: MEDULLARY THYROID CANCER
     Route: 048
     Dates: start: 20121102, end: 20131004
  2. VANDETANIB [Suspect]
     Indication: MEDULLARY THYROID CANCER
     Route: 048
     Dates: start: 20131005, end: 20140106
  3. VANDETANIB [Suspect]
     Indication: MEDULLARY THYROID CANCER
     Route: 048
     Dates: start: 20140107, end: 20140407
  4. VANDETANIB [Suspect]
     Indication: MEDULLARY THYROID CANCER
     Dosage: REDUCED
     Route: 048
     Dates: start: 20140408
  5. THYRONORM [Concomitant]
     Indication: THYROIDECTOMY
     Route: 048
     Dates: start: 20120807, end: 20140211
  6. ROCALTROL [Concomitant]
     Indication: THYROIDECTOMY
     Route: 048
     Dates: start: 20120721, end: 20140310
  7. CALCIMAX [Concomitant]
     Indication: THYROIDECTOMY
     Route: 048
     Dates: start: 20120721, end: 20140310
  8. HEXIDINE [Concomitant]
     Indication: OROPHARYNGEAL PAIN
     Route: 002
     Dates: start: 20130717, end: 20140326
  9. CITROMACALVIT [Concomitant]
     Indication: HYPOCALCAEMIA
     Dosage: THREE TIMES A DAY
     Route: 048
     Dates: start: 20131122
  10. LEVETIRACETAM [Concomitant]
     Indication: NEUROCYSTICERCOSIS
     Route: 042
     Dates: start: 20140211, end: 20140212
  11. LEVETIRACETAM [Concomitant]
     Indication: NEUROCYSTICERCOSIS
     Route: 048
     Dates: start: 20140212, end: 20140302
  12. DOLO [Concomitant]
     Indication: ANTIPYRESIS
     Route: 048
     Dates: start: 20140213, end: 20140303
  13. ELTROXIN [Concomitant]
     Indication: THYROIDECTOMY
     Route: 048
     Dates: start: 20140212, end: 20140304

REACTIONS (2)
  - Colitis [Recovered/Resolved]
  - Hypocalcaemia [Recovered/Resolved]
